FAERS Safety Report 23601834 (Version 2)
Quarter: 2024Q1

REPORT INFORMATION
  Report Type: Other
  Country: US (occurrence: None)
  Receive Date: 20240306
  Receipt Date: 20240311
  Transmission Date: 20240410
  Serious: Yes (Hospitalization, Other)
  Sender: FDA-Public Use
  Company Number: US-ROCHE-3514247

PATIENT
  Age: 56 Year
  Sex: Female
  Weight: 66.284 kg

DRUGS (14)
  1. OCREVUS [Suspect]
     Active Substance: OCRELIZUMAB
     Indication: Relapsing multiple sclerosis
     Dosage: LAST DOSE OF OCREVUS WAS ON 03/NOV/2023. NEXT INFUSION SCHEDULED FOR 03/MAY/2024.
     Route: 065
     Dates: start: 20190910
  2. OCREVUS [Suspect]
     Active Substance: OCRELIZUMAB
     Indication: Secondary progressive multiple sclerosis
  3. ACYCLOVIR [Concomitant]
     Active Substance: ACYCLOVIR
  4. ARMODAFINIL [Concomitant]
     Active Substance: ARMODAFINIL
  5. BUPROPION [Concomitant]
     Active Substance: BUPROPION
  6. HYDROCHLOROTHIAZIDE [Concomitant]
     Active Substance: HYDROCHLOROTHIAZIDE
  7. LISINOPRIL [Concomitant]
     Active Substance: LISINOPRIL
  8. MIRTAZAPINE [Concomitant]
     Active Substance: MIRTAZAPINE
  9. LEVOTHYROXINE [Concomitant]
     Active Substance: LEVOTHYROXINE\LEVOTHYROXINE SODIUM
  10. TIZANIDINE [Concomitant]
     Active Substance: TIZANIDINE
  11. VALACYCLOVIR HYDROCHLORIDE [Concomitant]
     Active Substance: VALACYCLOVIR HYDROCHLORIDE
  12. TYSABRI [Concomitant]
     Active Substance: NATALIZUMAB
  13. TECFIDERA [Concomitant]
     Active Substance: DIMETHYL FUMARATE
  14. COPAXONE [Concomitant]
     Active Substance: GLATIRAMER ACETATE

REACTIONS (10)
  - COVID-19 pneumonia [Not Recovered/Not Resolved]
  - Illness [Unknown]
  - COVID-19 [Recovered/Resolved]
  - Influenza [Recovered/Resolved]
  - Muscular weakness [Unknown]
  - Fall [Unknown]
  - Asthenia [Unknown]
  - Influenza [Recovered/Resolved]
  - Dyspnoea [Unknown]
  - Blood immunoglobulin G decreased [Unknown]

NARRATIVE: CASE EVENT DATE: 20231001
